FAERS Safety Report 9215725 (Version 1)
Quarter: 2013Q2

REPORT INFORMATION
  Report Type: Spontaneous
  Country: US (occurrence: US)
  Receive Date: 20130408
  Receipt Date: 20130408
  Transmission Date: 20140414
  Serious: Yes (Hospitalization)
  Sender: FDA-Public Use
  Company Number: US-BIOGENIDEC-2013BI030383

PATIENT
  Sex: Female

DRUGS (1)
  1. AVONEX [Suspect]
     Indication: MULTIPLE SCLEROSIS
     Route: 030
     Dates: start: 20120807

REACTIONS (15)
  - Back disorder [Unknown]
  - Musculoskeletal disorder [Unknown]
  - Inflammation [Unknown]
  - Cardiovascular disorder [Unknown]
  - Balance disorder [Unknown]
  - Visual impairment [Unknown]
  - Fear [Unknown]
  - Memory impairment [Unknown]
  - Influenza like illness [Unknown]
  - Fatigue [Unknown]
  - Insomnia [Unknown]
  - Dizziness [Unknown]
  - Nausea [Unknown]
  - Arthralgia [Unknown]
  - Multiple sclerosis relapse [Unknown]
